FAERS Safety Report 8295118-X (Version None)
Quarter: 2012Q2

REPORT INFORMATION
  Report Type: 
  Country: None (occurrence: None)
  Receive Date: 20120418
  Receipt Date: 20120223
  Transmission Date: 20120825
  Serious: No
  Sender: FDA-Public Use
  Company Number: US-ASTRAZENECA-2011SE30369

PATIENT
  Age: 60 Year
  Sex: Male

DRUGS (3)
  1. BISMUTH SUBSALICYLATE [Concomitant]
  2. NEXIUM [Suspect]
     Route: 048
  3. SEROQUEL [Suspect]
     Route: 048

REACTIONS (13)
  - GASTRIC DISORDER [None]
  - VOMITING [None]
  - CHEST PAIN [None]
  - POLLAKIURIA [None]
  - DRUG DOSE OMISSION [None]
  - CHEST DISCOMFORT [None]
  - DYSPNOEA [None]
  - ABDOMINAL PAIN UPPER [None]
  - DYSPHAGIA [None]
  - GASTROOESOPHAGEAL REFLUX DISEASE [None]
  - COUGH [None]
  - DYSPEPSIA [None]
  - CHOKING [None]
